FAERS Safety Report 20320119 (Version 8)
Quarter: 2022Q3

REPORT INFORMATION
  Report Type: Spontaneous
  Country: CA (occurrence: CA)
  Receive Date: 20220111
  Receipt Date: 20220827
  Transmission Date: 20221027
  Serious: Yes (Other)
  Sender: FDA-Public Use
  Company Number: CA-CELLTRION INC.-2019CA023787

PATIENT

DRUGS (15)
  1. INFLECTRA [Suspect]
     Active Substance: INFLIXIMAB-DYYB
     Indication: Ankylosing spondylitis
     Dosage: 400 MG, EVERY 6 WEEKS (6 MG/KG EVERY 6 WEEKS),6-7 WEEKS
     Route: 042
     Dates: start: 20190909
  2. INFLECTRA [Suspect]
     Active Substance: INFLIXIMAB-DYYB
     Dosage: 400 MG, EVERY 6 WEEKS (6 MG/KG EVERY 6 WEEKS)
     Route: 042
     Dates: start: 20200814
  3. INFLECTRA [Suspect]
     Active Substance: INFLIXIMAB-DYYB
     Dosage: 400 MG, EVERY 6 WEEKS (6 MG/KG EVERY 6 WEEKS)
     Route: 042
     Dates: start: 20201229
  4. INFLECTRA [Suspect]
     Active Substance: INFLIXIMAB-DYYB
     Dosage: 400 MG, EVERY 6 WEEKS (6 MG/KG EVERY 6 WEEKS)
     Route: 042
     Dates: start: 20210208
  5. INFLECTRA [Suspect]
     Active Substance: INFLIXIMAB-DYYB
     Dosage: 400 MG, EVERY 6 WEEKS (6 MG/KG EVERY 6 WEEKS)
     Route: 042
     Dates: start: 20210326
  6. INFLECTRA [Suspect]
     Active Substance: INFLIXIMAB-DYYB
     Dosage: 400 MG, EVERY 6 WEEKS (6 MG/KG EVERY 6 WEEKS)
     Route: 042
     Dates: start: 20210816
  7. INFLECTRA [Suspect]
     Active Substance: INFLIXIMAB-DYYB
     Dosage: 400 MG, EVERY 6 WEEKS (6 MG/KG EVERY 6 WEEKS)
     Route: 042
     Dates: start: 20211001
  8. INFLECTRA [Suspect]
     Active Substance: INFLIXIMAB-DYYB
     Dosage: 400 MG, EVERY 6 WEEKS (6 MG/KG EVERY 6 WEEKS)
     Route: 042
     Dates: start: 20211117
  9. INFLECTRA [Suspect]
     Active Substance: INFLIXIMAB-DYYB
     Dosage: 400 MG, EVERY 6 WEEKS (6 MG/KG EVERY 6 WEEKS)
     Route: 042
     Dates: start: 20211229
  10. INFLECTRA [Suspect]
     Active Substance: INFLIXIMAB-DYYB
     Dosage: 400 MG, EVERY 6 WEEKS (6 MG/KG EVERY 6 WEEKS)
     Route: 042
     Dates: start: 20220325
  11. INFLECTRA [Suspect]
     Active Substance: INFLIXIMAB-DYYB
     Dosage: 400 MG, EVERY 6 WEEKS (6 MG/KG EVERY 6 WEEKS)
     Route: 042
     Dates: start: 20220510
  12. INFLECTRA [Suspect]
     Active Substance: INFLIXIMAB-DYYB
     Dosage: 400 MG, EVERY 6 WEEKS (6 MG/KG EVERY 6 WEEKS),6-7 WEEKS
     Route: 042
     Dates: start: 20220510
  13. INFLECTRA [Suspect]
     Active Substance: INFLIXIMAB-DYYB
     Dosage: 400 MG, EVERY 6 WEEKS (6 MG/KG EVERY 6 WEEKS),6-7 WEEKS
     Route: 042
     Dates: start: 20220510
  14. METHOTREXATE [Concomitant]
     Active Substance: METHOTREXATE
     Indication: Ankylosing spondylitis
     Dosage: 15 MG, WEEKLY
     Route: 048
  15. METHOTREXATE [Concomitant]
     Active Substance: METHOTREXATE
     Indication: Immunosuppressant drug therapy
     Dosage: 10 MG, WEEKLY
     Route: 048

REACTIONS (22)
  - Oesophageal candidiasis [Unknown]
  - Surgery [Recovered/Resolved]
  - Off label use [Unknown]
  - Off label use [Unknown]
  - Off label use [Unknown]
  - Intentional product use issue [Unknown]
  - Arthralgia [Recovered/Resolved]
  - Joint swelling [Recovered/Resolved]
  - Joint effusion [Unknown]
  - Malaise [Recovered/Resolved]
  - Oropharyngeal pain [Unknown]
  - Chest pain [Unknown]
  - Myalgia [Unknown]
  - Body temperature increased [Unknown]
  - Candida infection [Not Recovered/Not Resolved]
  - Oral candidiasis [Recovered/Resolved]
  - Fall [Unknown]
  - Pain [Unknown]
  - Walking aid user [Unknown]
  - Gait disturbance [Unknown]
  - Pyrexia [Recovered/Resolved]
  - Asthenia [Recovered/Resolved]

NARRATIVE: CASE EVENT DATE: 20190909
